FAERS Safety Report 9708806 (Version 1)
Quarter: 2013Q4

REPORT INFORMATION
  Report Type: Spontaneous
  Country: DE (occurrence: DE)
  Receive Date: 20131125
  Receipt Date: 20131125
  Transmission Date: 20140711
  Serious: Yes (Life-Threatening)
  Sender: FDA-Public Use
  Company Number: GXKR2013DE003636

PATIENT
  Age: 83 Year
  Sex: Male

DRUGS (2)
  1. ACETYLSALICYLIC ACID [Suspect]
     Indication: TRANSIENT ISCHAEMIC ATTACK
  2. PLAVIX [Suspect]
     Indication: AORTIC ANEURYSM

REACTIONS (1)
  - Cerebral haemorrhage [Unknown]
